FAERS Safety Report 23888608 (Version 1)
Quarter: 2024Q2

REPORT INFORMATION
  Report Type: Spontaneous
  Country: US (occurrence: None)
  Receive Date: 20240522
  Receipt Date: 20240522
  Transmission Date: 20240715
  Serious: Yes (Life-Threatening, Hospitalization, Other)
  Sender: FDA-Public Use
  Company Number: None

PATIENT
  Age: 85 Year
  Sex: Female
  Weight: 79.2 kg

DRUGS (12)
  1. LEXISCAN [Suspect]
     Active Substance: REGADENOSON
     Indication: Cardiac stress test
     Dosage: OTHER FREQUENCY : ONCE;?
     Route: 040
     Dates: start: 20240422, end: 20240422
  2. AMIODARONE [Concomitant]
     Active Substance: AMIODARONE
     Dates: start: 20240418, end: 20240422
  3. SINEMET [Concomitant]
     Active Substance: CARBIDOPA\LEVODOPA
  4. DOCUSATE [Concomitant]
     Active Substance: DOCUSATE
  5. LEXAPRO [Concomitant]
     Active Substance: ESCITALOPRAM OXALATE
  6. FERROUS SULFATE [Concomitant]
     Active Substance: FERROUS SULFATE
  7. FLONASE [Concomitant]
     Active Substance: FLUTICASONE PROPIONATE
  8. GABAPENTIN [Concomitant]
     Active Substance: GABAPENTIN
  9. HEPARIN [Concomitant]
     Active Substance: HEPARIN SODIUM
  10. METOPROLOL [Concomitant]
     Active Substance: METOPROLOL
  11. PANTOPRAZOLE [Concomitant]
     Active Substance: PANTOPRAZOLE
  12. SPIRONOLACTONE [Concomitant]
     Active Substance: SPIRONOLACTONE

REACTIONS (4)
  - Dizziness [None]
  - Tinnitus [None]
  - Aphasia [None]
  - Movement disorder [None]

NARRATIVE: CASE EVENT DATE: 20240422
